FAERS Safety Report 8190233-3 (Version None)
Quarter: 2012Q1

REPORT INFORMATION
  Report Type: 
  Country: None (occurrence: None)
  Receive Date: 20120307
  Receipt Date: 20120227
  Transmission Date: 20120608
  Serious: Yes (Hospitalization)
  Sender: FDA-Public Use
  Company Number: US-ROXANE LABORATORIES, INC.-2012-RO-00736RO

PATIENT
  Age: 46 Year
  Sex: Female

DRUGS (6)
  1. ZIPRASIDONE HYDROCHLORIDE [Suspect]
     Indication: HALLUCINATION, VISUAL
  2. LITHIUM CARBONATE [Suspect]
     Indication: BIPOLAR DISORDER
     Dosage: 600 MG
  3. RISPERIDONE [Suspect]
     Indication: HALLUCINATION, VISUAL
  4. RISPERIDONE [Suspect]
     Indication: DELUSION
  5. RISPERIDONE [Suspect]
     Indication: HALLUCINATION, AUDITORY
  6. ZIPRASIDONE HYDROCHLORIDE [Suspect]
     Indication: DELUSION

REACTIONS (2)
  - HYPERTHYROIDISM [None]
  - TOXICITY TO VARIOUS AGENTS [None]
